FAERS Safety Report 6414787-X (Version None)
Quarter: 2009Q4

REPORT INFORMATION
  Report Type: 
  Country: None (occurrence: None)
  Receive Date: 20091026
  Receipt Date: 20091026
  Transmission Date: 20100525
  Serious: Yes (Other)
  Sender: FDA-Public Use
  Company Number: None

PATIENT
  Age: 65 Year
  Sex: Male
  Weight: 80.7403 kg

DRUGS (1)
  1. PLETAL [Suspect]
     Indication: POOR PERIPHERAL CIRCULATION
     Dosage: 2 PILLS TWICE A DAY PO
     Route: 048
     Dates: start: 20091016, end: 20091022

REACTIONS (7)
  - ABDOMINAL PAIN UPPER [None]
  - COUGH [None]
  - DIZZINESS [None]
  - FLATULENCE [None]
  - JOINT SWELLING [None]
  - OEDEMA PERIPHERAL [None]
  - RHINORRHOEA [None]
